FAERS Safety Report 7805077-9 (Version None)
Quarter: 2011Q4

REPORT INFORMATION
  Report Type: 
  Country: None (occurrence: None)
  Receive Date: 20111010
  Receipt Date: 20110930
  Transmission Date: 20120403
  Serious: Yes (Hospitalization)
  Sender: FDA-Public Use
  Company Number: IT-GLAXOSMITHKLINE-B0754001A

PATIENT
  Sex: Female

DRUGS (7)
  1. SPIROFUR [Concomitant]
     Dosage: 1UNIT PER DAY
     Route: 048
  2. SUGUAN [Concomitant]
     Indication: TYPE 2 DIABETES MELLITUS
     Route: 065
  3. BISOPROLOL FUMARATE [Concomitant]
     Dosage: 1UNIT PER DAY
     Route: 065
  4. KARVEA [Concomitant]
     Indication: HYPERTENSION
     Dosage: 150MG TWICE PER DAY
     Route: 048
  5. NORVASC [Concomitant]
     Route: 048
  6. LANOXIN [Suspect]
     Indication: CARDIAC FAILURE
     Dosage: .125MG PER DAY
     Route: 048
     Dates: start: 20110128, end: 20110712
  7. LASIX [Concomitant]
     Dosage: 25MG THREE TIMES PER DAY
     Route: 048

REACTIONS (2)
  - CARDIAC FAILURE CONGESTIVE [None]
  - TOXICITY TO VARIOUS AGENTS [None]
